FAERS Safety Report 7260741-8 (Version None)
Quarter: 2011Q1

REPORT INFORMATION
  Report Type: 
  Country: None (occurrence: None)
  Receive Date: 20110130
  Receipt Date: 20101222
  Transmission Date: 20110831
  Serious: No
  Sender: FDA-Public Use
  Company Number: US-ABBOTT-10P-163-0693475-00

PATIENT
  Age: 79 Year
  Sex: Female

DRUGS (4)
  1. AZATHIOPRINE [Concomitant]
     Indication: CROHN'S DISEASE
  2. ASPIRIN [Concomitant]
     Indication: CROHN'S DISEASE
  3. ATROVENT FHA [Concomitant]
     Indication: PRODUCT USED FOR UNKNOWN INDICATION
     Dosage: 2 PUFFS FOUR TIMES A DAY
  4. HUMIRA [Suspect]
     Indication: CROHN'S DISEASE
     Dates: start: 20101101

REACTIONS (1)
  - SWELLING [None]
